FAERS Safety Report 4322237-2 (Version None)
Quarter: 2004Q1

REPORT INFORMATION
  Report Type: 
  Country: None (occurrence: None)
  Receive Date: 20040323
  Receipt Date: 20040303
  Transmission Date: 20041129
  Serious: Yes (Hospitalization, Other)
  Sender: FDA-Public Use
  Company Number: 2004S1000663

PATIENT
  Age: 22 Year
  Sex: Male
  Weight: 104.3273 kg

DRUGS (4)
  1. CLOZARIL [Suspect]
     Indication: SCHIZOPHRENIA
     Dosage: ORAL
     Route: 048
     Dates: start: 19990101, end: 20031001
  2. CLOZAPINE [Suspect]
     Dosage: 200 MG Q AM, 500MG Q HS, ORAL
     Route: 048
     Dates: start: 20031001
  3. SERTRALINE HCL [Concomitant]
  4. DIVALOPREX SLOW RELEASE [Concomitant]

REACTIONS (5)
  - AGGRESSION [None]
  - CONVULSION [None]
  - DROOLING [None]
  - SOMNOLENCE [None]
  - WEIGHT INCREASED [None]
